FAERS Safety Report 8620238-7 (Version None)
Quarter: 2012Q3

REPORT INFORMATION
  Report Type: 
  Country: None (occurrence: None)
  Receive Date: 20120824
  Receipt Date: 20120821
  Transmission Date: 20120928
  Serious: Yes (Death)
  Sender: FDA-Public Use
  Company Number: PHHY2012CN072480

PATIENT
  Age: 48 Year
  Sex: Male

DRUGS (2)
  1. MYCOPHENOLATE MEFETIL [Suspect]
     Indication: STEM CELL TRANSPLANT
  2. CYCLOSPORINE [Suspect]
     Indication: STEM CELL TRANSPLANT

REACTIONS (3)
  - MULTI-ORGAN FAILURE [None]
  - GRAFT VERSUS HOST DISEASE [None]
  - LUNG INFECTION [None]
